FAERS Safety Report 6538847-8 (Version None)
Quarter: 2010Q1

REPORT INFORMATION
  Report Type: 
  Country: None (occurrence: None)
  Receive Date: 20100115
  Receipt Date: 20100106
  Transmission Date: 20100710
  Serious: Yes (Hospitalization)
  Sender: FDA-Public Use
  Company Number: JP-NOVOPROD-302847

PATIENT
  Age: 62 Year
  Sex: Female
  Weight: 49 kg

DRUGS (6)
  1. NOVOLIN R [Suspect]
     Indication: INTENTIONAL DRUG MISUSE
     Dosage: 150 U - 200 U, QD
     Route: 058
     Dates: start: 20091226
  2. NU-LOTAN [Concomitant]
     Dosage: 50 MG, UNK
     Route: 048
  3. ADALAT [Concomitant]
     Dosage: 20 MG, UNK
     Route: 048
  4. PLETAL [Concomitant]
     Dosage: 10 MG, UNK
     Route: 048
  5. MUCOSTA [Concomitant]
     Dosage: 100 MG, UNK
     Route: 048
  6. LIPITOR [Concomitant]
     Dosage: 10 MG, UNK
     Route: 048

REACTIONS (3)
  - HYPOGLYCAEMIA [None]
  - INTENTIONAL OVERDOSE [None]
  - SUICIDE ATTEMPT [None]
